FAERS Safety Report 6690553-5 (Version None)
Quarter: 2010Q2

REPORT INFORMATION
  Report Type: 
  Country: None (occurrence: None)
  Receive Date: 20100421
  Receipt Date: 20100420
  Transmission Date: 20101027
  Serious: Yes (Hospitalization)
  Sender: FDA-Public Use
  Company Number: A0784360A

PATIENT
  Age: 66 Year
  Sex: Female

DRUGS (16)
  1. AVANDIA [Suspect]
     Indication: DIABETES MELLITUS
     Dosage: 4MG PER DAY
     Route: 048
     Dates: start: 20020101, end: 20070101
  2. COLACE [Concomitant]
  3. AMBIEN [Concomitant]
  4. PRILOSEC [Concomitant]
  5. COREG [Concomitant]
  6. LISINOPRIL [Concomitant]
  7. CLONIDINE [Concomitant]
  8. PRAVASTATIN [Concomitant]
  9. ZOLOFT [Concomitant]
  10. PHENERGAN [Concomitant]
  11. ALBUTEROL [Concomitant]
  12. ALLEGRA [Concomitant]
  13. ZESTRIL [Concomitant]
  14. HUMALOG [Concomitant]
  15. PRAVACHOL [Concomitant]
  16. CATAPRES [Concomitant]

REACTIONS (4)
  - ARTERIOSCLEROSIS [None]
  - CARDIAC FAILURE CONGESTIVE [None]
  - ISCHAEMIC CARDIOMYOPATHY [None]
  - MYOCARDIAL INFARCTION [None]
